FAERS Safety Report 17537270 (Version 1)
Quarter: 2020Q1

REPORT INFORMATION
  Report Type: Spontaneous
  Country: US (occurrence: US)
  Receive Date: 20200313
  Receipt Date: 20200313
  Transmission Date: 20200409
  Serious: No
  Sender: FDA-Public Use
  Company Number: US-BRISTOL-MYERS SQUIBB COMPANY-BMS-2020-020169

PATIENT
  Sex: Male
  Weight: 90.25 kg

DRUGS (2)
  1. COUMADIN [Suspect]
     Active Substance: WARFARIN SODIUM
     Indication: ATRIAL FIBRILLATION
     Dosage: 10 MILLIGRAM, 5 TIMES/WK
     Route: 065
     Dates: start: 2004
  2. COUMADIN [Suspect]
     Active Substance: WARFARIN SODIUM
     Indication: PRODUCT USED FOR UNKNOWN INDICATION
     Dosage: 5 MILLIGRAM, 2 TIMES/WK
     Route: 065
     Dates: start: 2004

REACTIONS (3)
  - Fall [Unknown]
  - Epistaxis [Recovered/Resolved]
  - Weight [Unknown]

NARRATIVE: CASE EVENT DATE: 2019
